FAERS Safety Report 7276756-X (Version None)
Quarter: 2011Q1

REPORT INFORMATION
  Report Type: 
  Country: None (occurrence: None)
  Receive Date: 20110206
  Receipt Date: 20110111
  Transmission Date: 20110831
  Serious: Yes (Other)
  Sender: FDA-Public Use
  Company Number: US-BAYER-2011-003821

PATIENT
  Sex: Female
  Weight: 50 kg

DRUGS (6)
  1. GLIPIZIDE [Concomitant]
  2. TYLENOL W/ CODEINE [Concomitant]
  3. ALEVE (CAPLET) [Suspect]
     Dosage: UNK
     Route: 048
     Dates: start: 20110110
  4. LORAZEPAM [Concomitant]
  5. METOPROLOL TARTRATE [Concomitant]
  6. PLAVIX [Concomitant]

REACTIONS (6)
  - DIZZINESS [None]
  - TINNITUS [None]
  - NAUSEA [None]
  - SKIN DISORDER [None]
  - HAEMATOCHEZIA [None]
  - DIARRHOEA [None]
